FAERS Safety Report 6084557-3 (Version None)
Quarter: 2009Q1

REPORT INFORMATION
  Report Type: 
  Country: None (occurrence: None)
  Receive Date: 20090204
  Receipt Date: 20080617
  Transmission Date: 20090719
  Serious: Yes (Life-Threatening, Hospitalization)
  Sender: FDA-Public Use
  Company Number: 275522

PATIENT
  Age: 26 Year
  Sex: Female

DRUGS (1)
  1. NOVOLOG [Suspect]
     Indication: TYPE 1 DIABETES MELLITUS
     Dosage: SUBCUTANEOUS
     Route: 058

REACTIONS (1)
  - ANAPHYLACTIC SHOCK [None]
